FAERS Safety Report 5454730-3 (Version None)
Quarter: 2007Q3

REPORT INFORMATION
  Report Type: 
  Country: None (occurrence: None)
  Receive Date: 20070917
  Receipt Date: 20070330
  Transmission Date: 20080115
  Serious: No
  Sender: FDA-Public Use
  Company Number: US-ASTRAZENECA-2006UW12181

PATIENT
  Age: 695 Month
  Sex: Male
  Weight: 81.8 kg

DRUGS (5)
  1. SEROQUEL [Suspect]
     Indication: DEPRESSION
     Route: 048
     Dates: start: 20010101, end: 20060101
  2. SEROQUEL [Suspect]
     Indication: HALLUCINATION, AUDITORY
     Route: 048
     Dates: start: 20010101, end: 20060101
  3. ZYPREXA [Suspect]
  4. ABILIFY [Concomitant]
  5. RISPERDAL [Concomitant]
     Dates: start: 20010101, end: 20050101

REACTIONS (2)
  - DIABETES MELLITUS [None]
  - THROMBOSIS [None]
